FAERS Safety Report 7047999-5 (Version None)
Quarter: 2010Q4

REPORT INFORMATION
  Report Type: 
  Country: None (occurrence: None)
  Receive Date: 20101015
  Receipt Date: 20101012
  Transmission Date: 20110411
  Serious: Yes (Other)
  Sender: FDA-Public Use
  Company Number: A0883519A

PATIENT
  Age: 44 Year
  Sex: Male

DRUGS (4)
  1. LEXIVA [Suspect]
     Indication: HIV INFECTION
     Dosage: 1400MG TWICE PER DAY
     Route: 048
     Dates: start: 20081008
  2. SELZENTRY [Suspect]
     Indication: HIV INFECTION
     Dosage: 150MG TWICE PER DAY
     Route: 048
     Dates: start: 20081008
  3. ISENTRESS [Concomitant]
  4. OMEPRAZOLE [Concomitant]

REACTIONS (2)
  - BLOOD HIV RNA INCREASED [None]
  - DRUG INEFFECTIVE [None]
